FAERS Safety Report 8621374 (Version 5)
Quarter: 2012Q4

REPORT INFORMATION
  Report Type: Report from Study
  Country: NZ (occurrence: NZ)
  Receive Date: 20120619
  Receipt Date: 20121206
  Transmission Date: 20130627
  Serious: Yes (Other)
  Sender: FDA-Public Use
  Company Number: NZ-CELGENEUS-118-C5013-12060394

PATIENT
  Age: 77 Year
  Sex: Male
  Weight: 64.5 kg

DRUGS (10)
  1. CHLORAMBUCIL [Suspect]
     Indication: CLL
     Dosage: 48 Milligram
     Route: 065
     Dates: start: 20120319, end: 20120416
  2. CHLORAMBUCIL [Suspect]
     Route: 065
     Dates: start: 20120709
  3. CHLORAMBUCIL [Suspect]
     Dosage: 48 Milligram
     Route: 065
     Dates: start: 20121126
  4. LANSOPRAZOLE [Concomitant]
     Indication: GASTROESOPHAGEAL REFLUX
     Route: 065
     Dates: start: 20100609
  5. NAPROXEN [Concomitant]
     Indication: PAIN IN KNEE
     Route: 065
     Dates: start: 20100609
  6. AMITRIPTYLINE [Concomitant]
     Indication: HEADACHE
     Route: 065
     Dates: start: 20020404
  7. TERAZOSIN [Concomitant]
     Indication: PROSTATIC HYPERPLASIA
     Route: 065
     Dates: start: 20120609
  8. METACLOPRAMIDE [Concomitant]
     Indication: NAUSEA
     Route: 065
     Dates: start: 20120319
  9. ALLOPURINOL [Concomitant]
     Indication: TUMOUR LYSIS SYNDROME
     Route: 065
     Dates: start: 20120316, end: 20120401
  10. FLUARIX VACCINATION [Concomitant]
     Indication: PROPHYLAXIS
     Route: 065
     Dates: start: 20120328, end: 20120328

REACTIONS (8)
  - Skin cancer [Recovered/Resolved]
  - Skin cancer [Recovered/Resolved]
  - Skin cancer [Recovered/Resolved]
  - Skin cancer [Recovered/Resolved]
  - Skin cancer [Recovered/Resolved]
  - Squamous cell carcinoma of skin [Recovered/Resolved]
  - Skin cancer [Unknown]
  - Skin cancer [Unknown]
